FAERS Safety Report 17102859 (Version 2)
Quarter: 2019Q4

REPORT INFORMATION
  Report Type: Spontaneous
  Country: JP (occurrence: JP)
  Receive Date: 20191203
  Receipt Date: 20191206
  Transmission Date: 20200122
  Serious: Yes (Hospitalization, Other)
  Sender: FDA-Public Use
  Company Number: JP-ROCHE-2485848

PATIENT
  Age: 7 Decade
  Sex: Female

DRUGS (2)
  1. PERJETA [Suspect]
     Active Substance: PERTUZUMAB
     Indication: BREAST CANCER
     Dosage: FORM STRENGTH: 420MG/14ML
     Route: 041
  2. HERCEPTIN [Suspect]
     Active Substance: TRASTUZUMAB
     Indication: BREAST CANCER
     Dosage: DOSAGE IS UNCERTAIN.
     Route: 041

REACTIONS (2)
  - Portal hypertension [Unknown]
  - Varices oesophageal [Unknown]
